FAERS Safety Report 7588511-1 (Version None)
Quarter: 2011Q3

REPORT INFORMATION
  Report Type: 
  Country: None (occurrence: None)
  Receive Date: 20110705
  Receipt Date: 20110627
  Transmission Date: 20111222
  Serious: Yes (Other)
  Sender: FDA-Public Use
  Company Number: HU-PFIZER INC-2011143165

PATIENT
  Age: 75 Year
  Sex: Female
  Weight: 90 kg

DRUGS (5)
  1. MERCKFORMIN [Concomitant]
     Dosage: UNK
     Dates: start: 20090101
  2. XALATAN [Suspect]
     Indication: GLAUCOMA
     Dosage: UNK
     Dates: start: 20110101
  3. ATORIS [Concomitant]
     Dosage: UNK
     Dates: start: 20100101
  4. NOLPAZA [Concomitant]
     Dosage: UNK
     Dates: start: 20100101
  5. GLICLAZIDE [Concomitant]
     Dosage: UNK
     Dates: start: 20110101

REACTIONS (2)
  - VISION BLURRED [None]
  - BLINDNESS [None]
